FAERS Safety Report 14954983 (Version 1)
Quarter: 2018Q2

REPORT INFORMATION
  Report Type: Spontaneous
  Country: FR (occurrence: FR)
  Receive Date: 20180531
  Receipt Date: 20180531
  Transmission Date: 20180711
  Serious: Yes (Other)
  Sender: FDA-Public Use
  Company Number: FR-MERCK KGAA-2048725

PATIENT
  Sex: Female

DRUGS (1)
  1. NOVOTHYROX [Suspect]
     Active Substance: LEVOTHYROXINE SODIUM
     Indication: HYPERTHYROIDISM

REACTIONS (30)
  - Asthenia [Recovered/Resolved]
  - Fatigue [Recovered/Resolved]
  - Malaise [Recovered/Resolved]
  - Drug intolerance [Recovered/Resolved]
  - Urticaria [Recovered/Resolved]
  - Swelling [Recovered/Resolved]
  - Muscle fatigue [Recovered/Resolved]
  - Loss of libido [Recovered/Resolved]
  - Apathy [Recovered/Resolved]
  - Abdominal pain [Recovered/Resolved]
  - Amnesia [Recovered/Resolved]
  - Partner stress [Recovered/Resolved]
  - Gamma-glutamyltransferase increased [Recovered/Resolved]
  - Diarrhoea [Recovered/Resolved]
  - Headache [Recovered/Resolved]
  - Muscle spasms [Recovered/Resolved]
  - Dyspnoea [Recovered/Resolved]
  - Migraine [Recovered/Resolved]
  - Pruritus [Recovered/Resolved]
  - Irritability [Recovered/Resolved]
  - Stress [Recovered/Resolved]
  - Myxoedema [Recovered/Resolved]
  - Gastrointestinal disorder [Recovered/Resolved]
  - Disturbance in attention [Recovered/Resolved]
  - Housebound [Recovered/Resolved]
  - Nausea [Recovered/Resolved]
  - Weight increased [Recovered/Resolved]
  - Loss of personal independence in daily activities [Recovered/Resolved]
  - General physical health deterioration [Recovered/Resolved]
  - Alopecia [Recovered/Resolved]
